FAERS Safety Report 12905973 (Version 1)
Quarter: 2016Q4

REPORT INFORMATION
  Report Type: Other
  Country: NL (occurrence: NL)
  Receive Date: 20161103
  Receipt Date: 20161103
  Transmission Date: 20170207
  Serious: Yes (Hospitalization)
  Sender: FDA-Public Use
  Company Number: NL-HETERO LABS LTD-1059183

PATIENT
  Age: 31 Year
  Sex: Male

DRUGS (1)
  1. LEVETIRACETAM. [Suspect]
     Active Substance: LEVETIRACETAM
     Indication: PARTIAL SEIZURES
     Route: 065

REACTIONS (1)
  - Psychiatric symptom [Recovered/Resolved]
